FAERS Safety Report 9886492 (Version 1)
Quarter: 2014Q1

REPORT INFORMATION
  Report Type: Report from Study
  Country: AU (occurrence: AU)
  Receive Date: 20140210
  Receipt Date: 20140210
  Transmission Date: 20141002
  Serious: Yes (Other)
  Sender: FDA-Public Use
  Company Number: PHHY2014AU015070

PATIENT
  Age: 75 Year
  Sex: Female

DRUGS (10)
  1. ACLASTA [Suspect]
     Dosage: 5 MG, UNK
     Route: 042
     Dates: start: 20110316
  2. ACLASTA [Suspect]
     Dosage: 5 MG, UNK
     Route: 042
     Dates: start: 20120309
  3. ACLASTA [Suspect]
     Dosage: 5 MG, UNK
     Route: 042
     Dates: start: 20130209
  4. CALTRATE [Concomitant]
     Dosage: UNK UKN, QD
  5. PANAMAX [Concomitant]
     Dosage: UNK UKN, UNK
  6. POLY VISC [Concomitant]
     Dosage: UNK UKN, BID
  7. RHINOCORT AQUA [Concomitant]
     Dosage: 64 UG PER DOSE
  8. SERETIDE [Concomitant]
     Dosage: 50 UG, PER DOSE BID
  9. SOMAC [Concomitant]
     Dosage: 1 DF, QD
  10. VENTOLIN                           /00942701/ [Concomitant]
     Dosage: 100 UG PER DOSE DAILY PRN
     Route: 055

REACTIONS (4)
  - Benign breast neoplasm [Unknown]
  - Pancreatic neuroendocrine tumour [Unknown]
  - Goitre [Unknown]
  - Inappropriate schedule of drug administration [Unknown]
